FAERS Safety Report 17761691 (Version 1)
Quarter: 2020Q2

REPORT INFORMATION
  Report Type: Spontaneous
  Country: FR (occurrence: FR)
  Receive Date: 20200508
  Receipt Date: 20200508
  Transmission Date: 20200714
  Serious: Yes (Hospitalization)
  Sender: FDA-Public Use
  Company Number: FR-CADILA HEALTHCARE LIMITED-FR-ZYDUS-025433

PATIENT

DRUGS (16)
  1. KALEORID LP [Suspect]
     Active Substance: POTASSIUM CHLORIDE
     Indication: HYPOKALAEMIA
     Dosage: 3 DOSAGE FORM,(INTERVAL :1 DAYS)
     Route: 048
     Dates: start: 20180603, end: 20180603
  2. NEULEPTIL [Suspect]
     Active Substance: PERICIAZINE
     Indication: SCHIZOPHRENIA
     Dosage: 10,(INTERVAL :1 DAYS)
     Route: 048
     Dates: start: 20180603, end: 20180603
  3. AUGMENTIN [Concomitant]
     Active Substance: AMOXICILLIN\CLAVULANATE POTASSIUM
  4. SERETIDE [Concomitant]
     Active Substance: FLUTICASONE PROPIONATE\SALMETEROL XINAFOATE
  5. DEBRIDAT [Suspect]
     Active Substance: TRIMEBUTINE MALEATE
     Indication: ABDOMINAL PAIN
     Dosage: 1 DOSAGE FORM,(INTERVAL :1 DAYS)
     Route: 048
     Dates: start: 20180603, end: 20180603
  6. DAFLON [Concomitant]
  7. FORLAX [Concomitant]
     Active Substance: POLYETHYLENE GLYCOL 4000
  8. IRBESARTAN. [Suspect]
     Active Substance: IRBESARTAN
     Indication: HYPERTENSION
     Dosage: 300 MILLIGRAM,(INTERVAL :1 DAYS)
     Route: 048
     Dates: end: 201806
  9. LIPANTHYL [Concomitant]
     Active Substance: FENOFIBRATE
  10. BILASTINE [Suspect]
     Active Substance: BILASTINE
     Indication: HYPERSENSITIVITY
     Dosage: 1 DOSAGE FORM,(INTERVAL :1 DAYS)
     Route: 048
  11. LIORESAL [Suspect]
     Active Substance: BACLOFEN
     Indication: MUSCLE SPASMS
     Dosage: 2 DOSAGE FORM,(INTERVAL :1 DAYS)
     Route: 048
  12. STILNOX [Suspect]
     Active Substance: ZOLPIDEM TARTRATE
     Indication: INSOMNIA
     Dosage: 1 DOSAGE FORM,(INTERVAL :1 DAYS)
     Route: 048
     Dates: end: 20180603
  13. LASILIX [Suspect]
     Active Substance: FUROSEMIDE
     Indication: HYPERTENSION
     Dosage: 1/2 - 1- 0 ()
     Route: 048
  14. SINGULAIR [Suspect]
     Active Substance: MONTELUKAST SODIUM
     Indication: RESPIRATORY FAILURE
     Dosage: 1 DOSAGE FORM,(INTERVAL :1 DAYS)
     Route: 048
  15. TARDYFERON [Suspect]
     Active Substance: FERROUS SULFATE
     Indication: IRON DEFICIENCY ANAEMIA
     Dosage: 1 DOSAGE FORM,(INTERVAL :1 DAYS)
     Route: 048
     Dates: start: 20180603, end: 20180603
  16. URBANYL [Suspect]
     Active Substance: CLOBAZAM
     Indication: ANXIETY
     Dosage: 3 DOSAGE FORM,(INTERVAL :1 DAYS)
     Route: 048
     Dates: end: 20180606

REACTIONS (2)
  - Hypotension [Recovered/Resolved]
  - Somnolence [Recovered/Resolved]

NARRATIVE: CASE EVENT DATE: 20180603
